FAERS Safety Report 4280989-4 (Version None)
Quarter: 2004Q1

REPORT INFORMATION
  Report Type: 
  Country: None (occurrence: None)
  Receive Date: 20040122
  Receipt Date: 20031029
  Transmission Date: 20041129
  Serious: No
  Sender: FDA-Public Use
  Company Number: 2003184326US

PATIENT

DRUGS (1)
  1. SOMAVERT [Suspect]
     Indication: ACROMEGALY

REACTIONS (1)
  - BLOOD IMMUNOGLOBULIN A INCREASED [None]
